FAERS Safety Report 7402519-8 (Version None)
Quarter: 2011Q1

REPORT INFORMATION
  Report Type: 
  Country: None (occurrence: None)
  Receive Date: 20110331
  Receipt Date: 20110315
  Transmission Date: 20110831
  Serious: Yes (Other)
  Sender: FDA-Public Use
  Company Number: 030106

PATIENT
  Age: 12 Year
  Sex: Male

DRUGS (1)
  1. EQUASYM (EQUASYM XL) [Suspect]
     Indication: ATTENTION DEFICIT/HYPERACTIVITY DISORDER
     Dosage: (ORAL)
     Route: 048
     Dates: start: 20101001, end: 20101201

REACTIONS (1)
  - HAEMATURIA [None]
